FAERS Safety Report 13074179 (Version 1)
Quarter: 2016Q4

REPORT INFORMATION
  Report Type: Report from Study
  Country: JP (occurrence: JP)
  Receive Date: 20161230
  Receipt Date: 20161230
  Transmission Date: 20170207
  Serious: Yes (Death)
  Sender: FDA-Public Use
  Company Number: JP-ASTRAZENECA-2016SF37261

PATIENT
  Age: 68 Year
  Sex: Male
  Weight: 60 kg

DRUGS (5)
  1. LANSOPRAZOLE OD [Concomitant]
     Active Substance: LANSOPRAZOLE
     Dosage: 30 MG NUMBER OF SEPARATE DOSAGES UNKNOWN
     Route: 048
     Dates: start: 20160301, end: 20161205
  2. LIXIANA [Concomitant]
     Active Substance: EDOXABAN TOSILATE MONOHYDRATE
     Dosage: 60 MG NUMBER OF SEPARATE DOSAGES UNKNOWN
     Route: 048
     Dates: start: 20160712, end: 20161202
  3. RINDERON V [Concomitant]
     Active Substance: BETAMETHASONE VALERATE
     Dosage: 0.5 MG NUMBER OF SEPARATE DOSAGES UNKNOWN
     Route: 048
     Dates: start: 20160106
  4. TAGRISSO [Suspect]
     Active Substance: OSIMERTINIB
     Indication: NON-SMALL CELL LUNG CANCER
     Route: 048
     Dates: start: 20160719, end: 20161202
  5. THYRADIN S [Concomitant]
     Active Substance: LEVOTHYROXINE SODIUM
     Dosage: 25 UG NUMBER OF SEPARATE DOSAGES UNKNOWN
     Route: 048
     Dates: start: 20160924, end: 20161205

REACTIONS (1)
  - Interstitial lung disease [Fatal]

NARRATIVE: CASE EVENT DATE: 20161202
